FAERS Safety Report 10217037 (Version 1)
Quarter: 2014Q2

REPORT INFORMATION
  Report Type: Other
  Country: GB (occurrence: GB)
  Receive Date: 20140604
  Receipt Date: 20140604
  Transmission Date: 20141212
  Serious: Yes (Other)
  Sender: FDA-Public Use
  Company Number: GB-PERRIGO-14GB005440

PATIENT
  Sex: 0

DRUGS (5)
  1. DEXSOL 0.4MG/ML PL00427/0137 [Suspect]
     Indication: ANTIEMETIC SUPPORTIVE CARE
     Dosage: UNK
     Route: 065
  2. CYCLOPHOSPHAMIDE [Suspect]
     Indication: BREAST CANCER
     Dosage: DOSAGE FORM: UNSPECIFIED
     Route: 065
  3. DOMPERIDONE [Suspect]
     Indication: ANTIEMETIC SUPPORTIVE CARE
     Dosage: 10 MG, TID
     Route: 048
  4. EPIRUBICIN [Suspect]
     Indication: BREAST CANCER
     Dosage: UNK
     Route: 065
  5. FLUOROURACIL [Suspect]
     Indication: BREAST CANCER
     Dosage: UNK
     Route: 065

REACTIONS (2)
  - Urinary retention [Recovered/Resolved]
  - Peripheral swelling [Recovered/Resolved]
